FAERS Safety Report 7395585-X (Version None)
Quarter: 2011Q2

REPORT INFORMATION
  Report Type: 
  Country: None (occurrence: None)
  Receive Date: 20110405
  Receipt Date: 20110329
  Transmission Date: 20111010
  Serious: Yes (Hospitalization)
  Sender: FDA-Public Use
  Company Number: PHHO2011US05429

PATIENT
  Sex: Female
  Weight: 82.993 kg

DRUGS (7)
  1. AFINITOR [Suspect]
     Indication: COLORECTAL CANCER METASTATIC
     Dosage: 5 MG, QD
     Route: 048
     Dates: start: 20110303, end: 20110309
  2. IRINOTECAN [Suspect]
     Indication: COLORECTAL CANCER METASTATIC
     Dosage: 230 MG, DAYS 1, 8
     Route: 042
     Dates: start: 20110303, end: 20110310
  3. ERBITUX [Concomitant]
     Indication: COLORECTAL CANCER METASTATIC
     Dosage: 736 MG, DAYS 1, 8, 15
     Route: 042
     Dates: start: 20110303, end: 20110310
  4. LISINOPRIL [Concomitant]
  5. AMARYL [Concomitant]
  6. NORVASC [Concomitant]
  7. HYDROCHLOROTHIAZIDE [Concomitant]

REACTIONS (3)
  - FEBRILE NEUTROPENIA [None]
  - STOMATITIS [None]
  - THROMBOCYTOPENIA [None]
